FAERS Safety Report 5936270-8 (Version None)
Quarter: 2008Q4

REPORT INFORMATION
  Report Type: 
  Country: None (occurrence: None)
  Receive Date: 20081030
  Receipt Date: 20081020
  Transmission Date: 20090506
  Serious: Yes (Hospitalization, Other)
  Sender: FDA-Public Use
  Company Number: GR-CELGENEUS-066-21880-08091304

PATIENT
  Sex: Female

DRUGS (3)
  1. REVLIMID [Suspect]
     Route: 048
     Dates: start: 20080915, end: 20080917
  2. REVLIMID [Suspect]
     Route: 048
     Dates: start: 20080101
  3. ACETAMINOPHEN [Concomitant]
     Indication: ARTHRITIS
     Route: 065

REACTIONS (2)
  - EOSINOPHILIC CELLULITIS [None]
  - PYREXIA [None]
